FAERS Safety Report 7802072-0 (Version None)
Quarter: 2011Q4

REPORT INFORMATION
  Report Type: 
  Country: None (occurrence: None)
  Receive Date: 20111007
  Receipt Date: 20110926
  Transmission Date: 20120403
  Serious: Yes (Hospitalization)
  Sender: FDA-Public Use
  Company Number: FR-ELI_LILLY_AND_COMPANY-FR201109007000

PATIENT
  Sex: Male

DRUGS (8)
  1. MICARDIS [Concomitant]
     Dosage: UNK
  2. OXAZEPAM [Concomitant]
     Dosage: UNK
  3. ZYPREXA [Suspect]
     Dosage: 5 MG, QD
     Route: 048
     Dates: start: 20110725, end: 20110824
  4. RISPERDAL [Concomitant]
     Dosage: 2 MG, BID
     Route: 048
     Dates: start: 20110805, end: 20110824
  5. ATORVASTATIN CALCIUM [Concomitant]
     Dosage: UNK
  6. VALPROIC ACID [Concomitant]
     Dosage: 600 MG, BID
     Route: 048
     Dates: start: 20110805, end: 20110824
  7. COZAAR [Concomitant]
     Dosage: UNK
  8. ZOLPIDEM [Concomitant]
     Dosage: UNK

REACTIONS (6)
  - CONFUSIONAL STATE [None]
  - DYSPHAGIA [None]
  - RENAL FAILURE ACUTE [None]
  - PNEUMONIA ASPIRATION [None]
  - PARKINSON'S DISEASE [None]
  - OFF LABEL USE [None]
